FAERS Safety Report 9780883 (Version 1)
Quarter: 2013Q4

REPORT INFORMATION
  Report Type: Spontaneous
  Country: CH (occurrence: CH)
  Receive Date: 20131224
  Receipt Date: 20131224
  Transmission Date: 20140711
  Serious: Yes (Other)
  Sender: FDA-Public Use
  Company Number: CH-009507513-1312CHE009550

PATIENT
  Age: 61 Year
  Sex: Male
  Weight: 78.8 kg

DRUGS (6)
  1. INVANZ [Suspect]
     Indication: URINARY TRACT INFECTION
     Dosage: 1 G, QD
     Route: 041
     Dates: start: 20131109, end: 20131115
  2. ZIAGEN [Concomitant]
     Indication: HIV INFECTION
     Dosage: ONCE DAILY
  3. NEXIUM [Concomitant]
     Dosage: DAILY
     Route: 048
  4. INTELENCE [Concomitant]
     Indication: HIV INFECTION
     Dosage: DAILY
     Route: 048
  5. APROVEL [Concomitant]
     Indication: HYPERTENSION
     Dosage: 150 MG, QD
     Route: 048
  6. LAMIVUDINE [Concomitant]
     Indication: HIV INFECTION
     Dosage: 300 MG, QD
     Route: 048

REACTIONS (2)
  - Epilepsy [Recovered/Resolved]
  - Confusional state [Recovered/Resolved]
